FAERS Safety Report 21268812 (Version 1)
Quarter: 2022Q3

REPORT INFORMATION
  Report Type: Spontaneous
  Country: US (occurrence: US)
  Receive Date: 20220830
  Receipt Date: 20220830
  Transmission Date: 20221027
  Serious: No
  Sender: FDA-Public Use
  Company Number: US-TARO PHARMACEUTICALS USA INC.-2022TAR00263

PATIENT

DRUGS (1)
  1. CLOBETASOL PROPIONATE [Suspect]
     Active Substance: CLOBETASOL PROPIONATE
     Indication: Product used for unknown indication
     Dosage: ON THE BACK
     Route: 065

REACTIONS (8)
  - Blood glucose increased [Not Recovered/Not Resolved]
  - Enzyme level increased [Not Recovered/Not Resolved]
  - Feeling abnormal [Not Recovered/Not Resolved]
  - Somnolence [Not Recovered/Not Resolved]
  - Dysphonia [Not Recovered/Not Resolved]
  - Confusional state [Not Recovered/Not Resolved]
  - Decreased appetite [Recovered/Resolved]
  - Loss of personal independence in daily activities [Unknown]
